FAERS Safety Report 14311808 (Version 1)
Quarter: 2020Q3

REPORT INFORMATION
  Report Type: Spontaneous
  Country: PL (occurrence: PL)
  Receive Date: 20171221
  Receipt Date: 20171221
  Transmission Date: 20201105
  Serious: Yes (Life-Threatening, Hospitalization, Other)
  Sender: FDA-Public Use
  Company Number: PL-CIPLA LTD.-2017PL24968

PATIENT

DRUGS (7)
  1. NAPROXEN. [Suspect]
     Active Substance: NAPROXEN
     Indication: PAIN
     Dosage: UNK
     Route: 048
  2. NAPROXEN. [Suspect]
     Active Substance: NAPROXEN
     Dosage: UNK
     Route: 030
  3. DEXKETOPROPHEN [Suspect]
     Active Substance: DEXKETOPROFEN
     Indication: PAIN
     Dosage: UNK
     Route: 030
  4. IBANDRONIC ACID. [Suspect]
     Active Substance: IBANDRONIC ACID
     Indication: OSTEOPOROSIS
     Dosage: 150 MG, MONTHLY
     Route: 048
  5. KETOPROFEN. [Suspect]
     Active Substance: KETOPROFEN
     Indication: PAIN
     Dosage: UNK
     Route: 030
  6. KETOPROFEN. [Suspect]
     Active Substance: KETOPROFEN
     Dosage: UNK
     Route: 048
  7. DEXKETOPROPHEN [Suspect]
     Active Substance: DEXKETOPROFEN
     Dosage: UNK
     Route: 048

REACTIONS (5)
  - Pain in extremity [Unknown]
  - Femoral neck fracture [Unknown]
  - Drug ineffective [Unknown]
  - Groin pain [Unknown]
  - Fracture displacement [Unknown]
